FAERS Safety Report 11849677 (Version 1)
Quarter: 2015Q4

REPORT INFORMATION
  Report Type: Spontaneous
  Country: US (occurrence: None)
  Receive Date: 20151217
  Receipt Date: 20151217
  Transmission Date: 20160305
  Serious: No
  Sender: FDA-Public Use
  Company Number: None

PATIENT
  Age: 63 Year
  Sex: Female
  Weight: 56.7 kg

DRUGS (7)
  1. ORENCIA [Suspect]
     Active Substance: ABATACEPT
     Indication: RHEUMATOID ARTHRITIS
     Dosage: 1 SYRINGE WEEKLY  WEEKLY  GIVEN INTO/UNDER THE SKIN
     Route: 058
     Dates: start: 20150926, end: 20151031
  2. LEVOTHYROXINE. [Concomitant]
     Active Substance: LEVOTHYROXINE
  3. SULFASALAZINE. [Concomitant]
     Active Substance: SULFASALAZINE
  4. ARAVA [Concomitant]
     Active Substance: LEFLUNOMIDE
  5. DAYPRO [Concomitant]
     Active Substance: OXAPROZIN
  6. FOREO [Concomitant]
  7. PREDNISONE. [Concomitant]
     Active Substance: PREDNISONE

REACTIONS (2)
  - Paraesthesia [None]
  - Hypersensitivity [None]

NARRATIVE: CASE EVENT DATE: 20151025
